FAERS Safety Report 8955072 (Version 3)
Quarter: 2013Q1

REPORT INFORMATION
  Report Type: Report from Study
  Country: JP (occurrence: JP)
  Receive Date: 20121207
  Receipt Date: 20130322
  Transmission Date: 20140127
  Serious: Yes (Hospitalization)
  Sender: FDA-Public Use
  Company Number: JP-GILEAD-2012-0065526

PATIENT
  Age: 46 Year
  Sex: Male

DRUGS (1)
  1. ENTECAVIR [Suspect]
     Indication: CHRONIC HEPATITIS B
     Dosage: ADMINISTERING INFORMATION UNKNOWN
     Route: 048
     Dates: start: 20120509

REACTIONS (1)
  - Large intestine polyp [Recovered/Resolved]
